FAERS Safety Report 9166542 (Version 1)
Quarter: 2013Q1

REPORT INFORMATION
  Report Type: Spontaneous
  Country: CA (occurrence: CA)
  Receive Date: 20130315
  Receipt Date: 20130315
  Transmission Date: 20140127
  Serious: Yes (Other)
  Sender: FDA-Public Use
  Company Number: CHPA2013CA004488

PATIENT
  Age: 70 Year
  Sex: Female

DRUGS (3)
  1. BUCKLEY^S UNKNOWN [Suspect]
     Indication: NASOPHARYNGITIS
     Dosage: 0.25 TSP, TID
     Route: 048
     Dates: start: 201212, end: 201212
  2. BUCKLEY^S UNKNOWN [Suspect]
     Dosage: 0.25 TSP, QID
  3. ANTIHYPERTENSIVES [Concomitant]
     Indication: HYPERTENSION

REACTIONS (5)
  - Nephrolithiasis [Recovered/Resolved]
  - Malaise [Recovered/Resolved]
  - Pulmonary congestion [Unknown]
  - Therapeutic response unexpected [Unknown]
  - Underdose [Unknown]
